FAERS Safety Report 8144504-7 (Version None)
Quarter: 2012Q1

REPORT INFORMATION
  Report Type: 
  Country: None (occurrence: None)
  Receive Date: 20120217
  Receipt Date: 20120208
  Transmission Date: 20120608
  Serious: Yes (Other)
  Sender: FDA-Public Use
  Company Number: CA-JNJFOC-20120205654

PATIENT
  Sex: Female
  Weight: 57 kg

DRUGS (2)
  1. NORVASC [Concomitant]
     Dosage: 2.5 (UNSPECIFIED)
     Route: 048
  2. REMICADE [Suspect]
     Indication: COLITIS ULCERATIVE
     Route: 042
     Dates: start: 20111215, end: 20111215

REACTIONS (1)
  - TIBIA FRACTURE [None]
